FAERS Safety Report 11594015 (Version 1)
Quarter: 2015Q4

REPORT INFORMATION
  Report Type: Spontaneous
  Country: US (occurrence: US)
  Receive Date: 20151005
  Receipt Date: 20151005
  Transmission Date: 20160304
  Serious: No
  Sender: FDA-Public Use
  Company Number: US-PERRIGO-14US009427

PATIENT
  Age: 80 Year
  Sex: Female
  Weight: 71.66 kg

DRUGS (3)
  1. DOXYLAMINE SUCCINATE 25 MG 441 [Suspect]
     Active Substance: DOXYLAMINE SUCCINATE
     Indication: INSOMNIA
     Dosage: 25 MG, SINGLE
     Route: 048
     Dates: start: 20140911, end: 20140911
  2. DOXYLAMINE SUCCINATE 25 MG 441 [Suspect]
     Active Substance: DOXYLAMINE SUCCINATE
     Dosage: 12.5 MG, QD AT BEDTIME
     Route: 048
     Dates: start: 20140915, end: 20140917
  3. DOXYLAMINE SUCCINATE 25 MG 441 [Suspect]
     Active Substance: DOXYLAMINE SUCCINATE
     Dosage: 1/4 TABLET, QD AT BEDTIME
     Route: 048
     Dates: start: 20140918

REACTIONS (4)
  - Wrong technique in product usage process [Unknown]
  - Muscular weakness [Unknown]
  - Underdose [Unknown]
  - Somnolence [Unknown]

NARRATIVE: CASE EVENT DATE: 20140912
